FAERS Safety Report 18776473 (Version 1)
Quarter: 2021Q1

REPORT INFORMATION
  Report Type: Spontaneous
  Country: US (occurrence: US)
  Receive Date: 20210122
  Receipt Date: 20210122
  Transmission Date: 20210419
  Serious: Yes (Hospitalization, Other)
  Sender: FDA-Public Use
  Company Number: US-ELI_LILLY_AND_COMPANY-US202101005090

PATIENT
  Age: 81 Year
  Sex: Female

DRUGS (2)
  1. HUMALOG [Suspect]
     Active Substance: INSULIN LISPRO
     Indication: TYPE 1 DIABETES MELLITUS
     Dosage: 16 U, DAILY
     Route: 058
     Dates: start: 2003
  2. TOUJEO [Concomitant]
     Active Substance: INSULIN GLARGINE
     Indication: TYPE 1 DIABETES MELLITUS
     Dosage: 80 U, DAILY (AT NIGHT)

REACTIONS (16)
  - Bladder disorder [Unknown]
  - Blood glucose decreased [Recovered/Resolved]
  - Blood glucose increased [Recovered/Resolved]
  - Bladder disorder [Not Recovered/Not Resolved]
  - Myelodysplastic syndrome [Unknown]
  - Hypertension [Unknown]
  - Gastrooesophageal reflux disease [Unknown]
  - Loss of consciousness [Unknown]
  - Limb injury [Unknown]
  - Myocardial infarction [Unknown]
  - Head injury [Unknown]
  - Fall [Recovered/Resolved]
  - Hyperhidrosis [Unknown]
  - Chest pain [Unknown]
  - Fatigue [Unknown]
  - Asthenia [Unknown]

NARRATIVE: CASE EVENT DATE: 2003
